FAERS Safety Report 6080511-6 (Version None)
Quarter: 2009Q1

REPORT INFORMATION
  Report Type: 
  Country: None (occurrence: None)
  Receive Date: 20090217
  Receipt Date: 20090212
  Transmission Date: 20090719
  Serious: Yes (Hospitalization, Congenital Anomaly)
  Sender: FDA-Public Use
  Company Number: A0747589A

PATIENT
  Sex: Male
  Weight: 2.9 kg

DRUGS (1)
  1. PAXIL [Suspect]
     Indication: DEPRESSION
     Dates: start: 19910101, end: 20070811

REACTIONS (10)
  - ATRIAL SEPTAL DEFECT [None]
  - BODY HEIGHT BELOW NORMAL [None]
  - CARDIAC DISORDER [None]
  - DRUG EXPOSURE DURING PREGNANCY [None]
  - HAEMORRHAGE [None]
  - LEARNING DISORDER [None]
  - NOONAN SYNDROME [None]
  - PULMONARY ARTERY STENOSIS CONGENITAL [None]
  - SPEECH DISORDER DEVELOPMENTAL [None]
  - VON WILLEBRAND'S DISEASE [None]
